FAERS Safety Report 11219774 (Version 2)
Quarter: 2015Q3

REPORT INFORMATION
  Report Type: Spontaneous
  Country: JP (occurrence: JP)
  Receive Date: 20150625
  Receipt Date: 20150811
  Transmission Date: 20151125
  Serious: Yes (Hospitalization)
  Sender: FDA-Public Use
  Company Number: JP-PFIZER INC-2015206854

PATIENT
  Age: 1 Year

DRUGS (1)
  1. ZITHROMAC [Suspect]
     Active Substance: AZITHROMYCIN DIHYDRATE
     Dosage: UNK
     Route: 048

REACTIONS (2)
  - Hypoglycaemia [Unknown]
  - Drug level decreased [Unknown]

NARRATIVE: CASE EVENT DATE: 20150618
